FAERS Safety Report 21358334 (Version 1)
Quarter: 2022Q3

REPORT INFORMATION
  Report Type: Spontaneous
  Country: CN (occurrence: CN)
  Receive Date: 20220921
  Receipt Date: 20220921
  Transmission Date: 20221027
  Serious: Yes (Other)
  Sender: FDA-Public Use
  Company Number: CN-SUN PHARMACEUTICAL INDUSTRIES LTD-2020R1-236612

PATIENT
  Age: 82 Year
  Sex: Male

DRUGS (2)
  1. ATORVASTATIN [Interacting]
     Active Substance: ATORVASTATIN
     Indication: Product used for unknown indication
     Dosage: 20 MILLIGRAM, DAILY
     Route: 065
  2. FLUCONAZOLE [Interacting]
     Active Substance: FLUCONAZOLE
     Indication: Antifungal treatment
     Dosage: UNK
     Route: 065

REACTIONS (3)
  - Myoglobin blood increased [Recovering/Resolving]
  - Alanine aminotransferase increased [Recovering/Resolving]
  - Drug interaction [Unknown]
